FAERS Safety Report 5056592-5 (Version None)
Quarter: 2006Q3

REPORT INFORMATION
  Report Type: 
  Country: None (occurrence: None)
  Receive Date: 20060720
  Receipt Date: 20060626
  Transmission Date: 20061208
  Serious: Yes (Hospitalization)
  Sender: FDA-Public Use
  Company Number: US-MERCK-0606USA05084

PATIENT
  Age: 78 Year
  Sex: Male
  Weight: 91 kg

DRUGS (6)
  1. VYTORIN [Suspect]
     Indication: BLOOD CHOLESTEROL INCREASED
     Route: 048
     Dates: start: 20051017, end: 20060611
  2. VYTORIN [Suspect]
     Indication: CORONARY ARTERY DISEASE
     Route: 048
     Dates: start: 20051017, end: 20060611
  3. NIACIN [Concomitant]
     Indication: LIPIDS
     Route: 065
     Dates: end: 20060507
  4. NIACIN [Concomitant]
     Route: 065
     Dates: start: 20060508, end: 20060611
  5. ZESTRIL [Concomitant]
     Route: 065
  6. ATENOLOL [Concomitant]
     Route: 065

REACTIONS (6)
  - ABDOMINAL PAIN [None]
  - ALANINE AMINOTRANSFERASE INCREASED [None]
  - ASPARTATE AMINOTRANSFERASE INCREASED [None]
  - BLOOD ALKALINE PHOSPHATASE INCREASED [None]
  - INTERNATIONAL NORMALISED RATIO INCREASED [None]
  - VOMITING [None]
